FAERS Safety Report 17832291 (Version 1)
Quarter: 2020Q2

REPORT INFORMATION
  Report Type: Spontaneous
  Country: US (occurrence: US)
  Receive Date: 20200527
  Receipt Date: 20200527
  Transmission Date: 20200714
  Serious: No
  Sender: FDA-Public Use
  Company Number: US-ROCHE-2443307

PATIENT
  Sex: Female

DRUGS (1)
  1. OCREVUS [Suspect]
     Active Substance: OCRELIZUMAB
     Indication: MULTIPLE SCLEROSIS
     Dosage: ONGOING YES?DAY 1 AND 15 INDUCTION
     Route: 042
     Dates: start: 20180928

REACTIONS (2)
  - No adverse event [Unknown]
  - Drug ineffective [Unknown]
